FAERS Safety Report 8332143-4 (Version None)
Quarter: 2012Q2

REPORT INFORMATION
  Report Type: 
  Country: None (occurrence: None)
  Receive Date: 20120502
  Receipt Date: 20120420
  Transmission Date: 20120825
  Serious: Yes (Death, Other)
  Sender: FDA-Public Use
  Company Number: US-AMGEN-USASP2012022764

PATIENT

DRUGS (1)
  1. ENBREL [Suspect]
     Indication: PRODUCT USED FOR UNKNOWN INDICATION
     Dosage: UNK
     Route: 065

REACTIONS (5)
  - VIRAL MYOCARDITIS [None]
  - CARDIOMYOPATHY [None]
  - DEATH [None]
  - PERICARDIAL EFFUSION [None]
  - MULTI-ORGAN FAILURE [None]
